FAERS Safety Report 18600975 (Version 1)
Quarter: 2020Q4

REPORT INFORMATION
  Report Type: Spontaneous
  Country: US (occurrence: US)
  Receive Date: 20201210
  Receipt Date: 20201210
  Transmission Date: 20210114
  Serious: Yes (Hospitalization, Other)
  Sender: FDA-Public Use
  Company Number: US-JNJFOC-20201205508

PATIENT
  Age: 32 Year
  Sex: Female

DRUGS (1)
  1. IMODIUM [Suspect]
     Active Substance: LOPERAMIDE HYDROCHLORIDE
     Indication: PRODUCT USED FOR UNKNOWN INDICATION
     Dosage: 200 TABLETS
     Route: 065

REACTIONS (5)
  - Hypokalaemia [Unknown]
  - Drug abuse [Unknown]
  - Torsade de pointes [Unknown]
  - Overdose [Unknown]
  - Ventricular extrasystoles [Unknown]
